FAERS Safety Report 9703311 (Version 2)
Quarter: 2014Q1

REPORT INFORMATION
  Report Type: Spontaneous
  Country: GB (occurrence: GB)
  Receive Date: 20131122
  Receipt Date: 20140311
  Transmission Date: 20141002
  Serious: Yes (Other)
  Sender: FDA-Public Use
  Company Number: GB-ROCHE-1307139

PATIENT
  Age: 82 Year
  Sex: Male

DRUGS (1)
  1. ACTILYSE [Suspect]
     Indication: ISCHAEMIC STROKE
     Dosage: REPEAT IV THROMBOLYSIS WAS DONE WITHIN 6 H RELATIVELY CONTRAINDICATED
     Route: 042

REACTIONS (3)
  - Cerebrovascular accident [Unknown]
  - Neurological decompensation [Unknown]
  - Off label use [Unknown]
